FAERS Safety Report 17438543 (Version 1)
Quarter: 2020Q1

REPORT INFORMATION
  Report Type: Report from Study
  Country: US (occurrence: US)
  Receive Date: 20200220
  Receipt Date: 20200220
  Transmission Date: 20200409
  Serious: Yes (Hospitalization, Other)
  Sender: FDA-Public Use
  Company Number: US-ROCHE-2534213

PATIENT
  Sex: Male
  Weight: 79.45 kg

DRUGS (15)
  1. AMANTADINE. [Concomitant]
     Active Substance: AMANTADINE HYDROCHLORIDE
     Route: 048
     Dates: start: 2013
  2. BACLOFEN. [Concomitant]
     Active Substance: BACLOFEN
  3. OCREVUS [Suspect]
     Active Substance: OCRELIZUMAB
     Indication: PRIMARY PROGRESSIVE MULTIPLE SCLEROSIS
     Route: 042
     Dates: start: 201801
  4. ZANTAC [Concomitant]
     Active Substance: RANITIDINE HYDROCHLORIDE
     Route: 048
     Dates: start: 2012
  5. PERCOCET [Concomitant]
     Active Substance: ACETAMINOPHEN\OXYCODONE HYDROCHLORIDE
     Indication: BREAKTHROUGH PAIN
     Dosage: DOSAGE IS 5/325
     Route: 048
  6. DIAMOX SEQUELS [Concomitant]
     Active Substance: ACETAZOLAMIDE
     Route: 048
     Dates: start: 2012
  7. OCREVUS [Suspect]
     Active Substance: OCRELIZUMAB
     Indication: MULTIPLE SCLEROSIS
     Dosage: SUBSEQUENT DOSE ON 09/AUG/2018
     Route: 042
     Dates: start: 20180727
  8. OCREVUS [Suspect]
     Active Substance: OCRELIZUMAB
     Dosage: SUBSEQUENT DOSE ON 16/AUG/2019
     Route: 042
     Dates: start: 20190215
  9. BENADRYL [Concomitant]
     Active Substance: DIPHENHYDRAMINE HYDROCHLORIDE
  10. ADVIL [IBUPROFEN] [Concomitant]
     Active Substance: IBUPROFEN
     Indication: PAIN
     Dosage: TAKE 600 OR 800 MG DEPENDING UPON PAIN
     Route: 048
  11. FLOMAX [Concomitant]
     Active Substance: TAMSULOSIN HYDROCHLORIDE
     Indication: NEUROGENIC BLADDER
     Route: 048
     Dates: start: 2016
  12. CONTACT LAXATIVES [Concomitant]
     Active Substance: UNSPECIFIED INGREDIENT
     Dosage: FREQUENCY 2 TO 3 TIMES A WEEK
     Route: 048
     Dates: start: 2016
  13. PAMELOR [Concomitant]
     Active Substance: NORTRIPTYLINE HYDROCHLORIDE
     Indication: PAIN
     Route: 048
     Dates: start: 2005
  14. RITUXAN [Suspect]
     Active Substance: RITUXIMAB
     Indication: MULTIPLE SCLEROSIS
     Route: 065
     Dates: start: 201601
  15. ADDERALL [Concomitant]
     Active Substance: AMPHETAMINE ASPARTATE\AMPHETAMINE SULFATE\DEXTROAMPHETAMINE SACCHARATE\DEXTROAMPHETAMINE SULFATE
     Indication: FATIGUE
     Route: 048
     Dates: start: 2013

REACTIONS (13)
  - Fatigue [Not Recovered/Not Resolved]
  - Anxiety [Unknown]
  - Intentional product use issue [Unknown]
  - Throat irritation [Recovered/Resolved]
  - Hypersomnia [Recovered/Resolved]
  - Pruritus [Recovered/Resolved]
  - Upper-airway cough syndrome [Recovered/Resolved]
  - Fatigue [Recovered/Resolved]
  - Hypoaesthesia [Unknown]
  - Multiple sclerosis relapse [Recovered/Resolved]
  - Asthenia [Unknown]
  - Off label use [Unknown]
  - Nausea [Recovered/Resolved]

NARRATIVE: CASE EVENT DATE: 2016
